FAERS Safety Report 15694431 (Version 15)
Quarter: 2020Q3

REPORT INFORMATION
  Report Type: Report from Study
  Country: AR (occurrence: AR)
  Receive Date: 20181206
  Receipt Date: 20200826
  Transmission Date: 20201102
  Serious: Yes (Hospitalization, Other)
  Sender: FDA-Public Use
  Company Number: AR-ACTELION-A-CH2018-182674

PATIENT
  Age: 59 Year
  Sex: Female
  Weight: 104 kg

DRUGS (3)
  1. OPSUMIT [Suspect]
     Active Substance: MACITENTAN
     Indication: PULMONARY ARTERIAL HYPERTENSION
     Dosage: 10 MG, QD
     Route: 048
     Dates: start: 20150901
  2. SILDENAFIL. [Concomitant]
     Active Substance: SILDENAFIL
  3. OPSUMIT [Suspect]
     Active Substance: MACITENTAN
     Dosage: 10 MG, QD
     Route: 048
     Dates: start: 20150101

REACTIONS (30)
  - Transfusion [Not Recovered/Not Resolved]
  - Immune system disorder [Unknown]
  - Breast haemorrhage [Not Recovered/Not Resolved]
  - Chest pain [Unknown]
  - Radiotherapy [Unknown]
  - Breast cancer [Not Recovered/Not Resolved]
  - Thrombosis [Not Recovered/Not Resolved]
  - Pulmonary arterial hypertension [Unknown]
  - Colitis [Unknown]
  - Product supply issue [Unknown]
  - Muscle spasms [Unknown]
  - Pyrexia [Unknown]
  - Nausea [Unknown]
  - Dizziness [Unknown]
  - Procedural anxiety [Unknown]
  - Fatigue [Unknown]
  - Hypotension [Unknown]
  - Choking [Unknown]
  - Cancer surgery [Unknown]
  - Breast operation [Unknown]
  - Malaise [Not Recovered/Not Resolved]
  - Effusion [Not Recovered/Not Resolved]
  - Pulmonary arterial wedge pressure increased [Unknown]
  - Cough [Unknown]
  - Secondary immunodeficiency [Unknown]
  - Disorientation [Unknown]
  - Condition aggravated [Unknown]
  - Syncope [Unknown]
  - Influenza [Unknown]
  - Pain [Unknown]

NARRATIVE: CASE EVENT DATE: 20190228
